FAERS Safety Report 7503678-9 (Version None)
Quarter: 2011Q2

REPORT INFORMATION
  Report Type: 
  Country: None (occurrence: None)
  Receive Date: 20110525
  Receipt Date: 20110519
  Transmission Date: 20111010
  Serious: Yes (Death, Other)
  Sender: FDA-Public Use
  Company Number: TR-US-EMD SERONO, INC.-7057044

PATIENT

DRUGS (1)
  1. REBIF [Suspect]
     Indication: MULTIPLE SCLEROSIS
     Route: 064
     Dates: start: 20070101, end: 20110428

REACTIONS (2)
  - FOETAL HEART RATE ABNORMAL [None]
  - FOETAL GROWTH RESTRICTION [None]
